FAERS Safety Report 7000010-4 (Version None)
Quarter: 2010Q3

REPORT INFORMATION
  Report Type: 
  Country: None (occurrence: None)
  Receive Date: 20100920
  Receipt Date: 20100723
  Transmission Date: 20110219
  Serious: No
  Sender: FDA-Public Use
  Company Number: US-ASTRAZENECA-2009UW17742

PATIENT
  Age: 43 Year
  Sex: Male
  Weight: 99.8 kg

DRUGS (9)
  1. SEROQUEL [Suspect]
     Indication: SCHIZOPHRENIA
     Route: 048
     Dates: start: 19940101
  2. SEROQUEL [Suspect]
     Indication: BIPOLAR DISORDER
     Route: 048
     Dates: start: 19940101
  3. SEROQUEL [Suspect]
     Dosage: 200 MG, 600 MG
     Route: 048
     Dates: start: 19990101, end: 20090101
  4. SEROQUEL [Suspect]
     Dosage: 200 MG, 600 MG
     Route: 048
     Dates: start: 19990101, end: 20090101
  5. ABILIFY [Concomitant]
     Dosage: 5 MG TO 10 MG PER DAY
  6. CLOZARIL [Concomitant]
  7. HALDOL [Concomitant]
  8. ALPRAZOLAM [Concomitant]
     Dates: start: 20071029
  9. INVEGA [Concomitant]
     Dates: start: 20071029

REACTIONS (6)
  - DEAFNESS [None]
  - HEART RATE ABNORMAL [None]
  - MICTURITION DISORDER [None]
  - OBESITY [None]
  - TYPE 2 DIABETES MELLITUS [None]
  - WEIGHT INCREASED [None]
